FAERS Safety Report 18785476 (Version 9)
Quarter: 2021Q2

REPORT INFORMATION
  Report Type: Spontaneous
  Country: US (occurrence: US)
  Receive Date: 20210125
  Receipt Date: 20210622
  Transmission Date: 20210717
  Serious: Yes (Other)
  Sender: FDA-Public Use
  Company Number: US-NOVOPROD-781760

PATIENT
  Sex: Female

DRUGS (2)
  1. NOVOLOG [Suspect]
     Active Substance: INSULIN ASPART
     Indication: DIABETES MELLITUS
     Dosage: UNK
     Route: 058
     Dates: start: 2011
  2. LEVEMIR [Suspect]
     Active Substance: INSULIN DETEMIR
     Indication: DIABETES MELLITUS
     Dosage: 20 UNITS
     Route: 058
     Dates: start: 2011

REACTIONS (18)
  - Abdominal operation [Unknown]
  - Renal failure [Unknown]
  - Groin pain [Unknown]
  - Burn operation [Unknown]
  - Aortic aneurysm [Unknown]
  - Skin discolouration [Unknown]
  - Ill-defined disorder [Unknown]
  - Feeling abnormal [Unknown]
  - Urinary tract infection [Unknown]
  - Product label issue [Unknown]
  - Injection site induration [Unknown]
  - Glycosylated haemoglobin increased [Unknown]
  - Adrenal mass [Unknown]
  - Balance disorder [Unknown]
  - Blood cholesterol abnormal [Unknown]
  - Skin plaque [Unknown]
  - Hypertension [Unknown]
  - Confusional state [Unknown]
